FAERS Safety Report 5428845-X (Version None)
Quarter: 2007Q3

REPORT INFORMATION
  Report Type: 
  Country: None (occurrence: None)
  Receive Date: 20070829
  Receipt Date: 20070418
  Transmission Date: 20080115
  Serious: No
  Sender: FDA-Public Use
  Company Number: A0639715A

PATIENT
  Age: 49 Year
  Sex: Male

DRUGS (3)
  1. ZOVIRAX [Suspect]
     Dosage: 400MG FOUR TIMES PER DAY
     Route: 048
     Dates: start: 20070210
  2. ZOVIRAX [Suspect]
     Route: 061
  3. ACTIFED [Concomitant]

REACTIONS (3)
  - DRUG INEFFECTIVE [None]
  - INFECTION [None]
  - PHARMACEUTICAL PRODUCT COMPLAINT [None]
